FAERS Safety Report 9319798 (Version 2)
Quarter: 2014Q1

REPORT INFORMATION
  Report Type: Spontaneous
  Country: US (occurrence: US)
  Receive Date: 20130530
  Receipt Date: 20140310
  Transmission Date: 20141002
  Serious: Yes (Hospitalization)
  Sender: FDA-Public Use
  Company Number: US-BAYER-2013-066378

PATIENT
  Age: 22 Year
  Sex: Female

DRUGS (2)
  1. YASMIN [Suspect]
  2. ADVIL [Concomitant]
     Dosage: UNK
     Dates: start: 20020812

REACTIONS (3)
  - Deep vein thrombosis [None]
  - Pelvic venous thrombosis [None]
  - Vena cava thrombosis [None]
